FAERS Safety Report 4607163-3 (Version None)
Quarter: 2005Q1

REPORT INFORMATION
  Report Type: 
  Country: None (occurrence: None)
  Receive Date: 20050309
  Receipt Date: 20050228
  Transmission Date: 20050727
  Serious: Yes (Hospitalization, Other)
  Sender: FDA-Public Use
  Company Number: 212372

PATIENT
  Age: 19 Year
  Sex: Female
  Weight: 70.3 kg

DRUGS (5)
  1. XOLAIR [Suspect]
     Indication: ASTHMA
     Dosage: 300 MG, Q2W, SUBCUTANEOUS
     Route: 058
     Dates: start: 20040405
  2. ALLEGRA [Concomitant]
  3. ADVAIR (FLUTICASONE PROPIONATE, SALMETEROL XINAFOATE) [Concomitant]
  4. ALBUTEROL (ALBUTEROL SULFATE, ALBUTEROL) [Concomitant]
  5. ELOCON [Concomitant]

REACTIONS (2)
  - HEADACHE [None]
  - VISUAL DISTURBANCE [None]
